FAERS Safety Report 6462873-0 (Version None)
Quarter: 2009Q4

REPORT INFORMATION
  Report Type: 
  Country: None (occurrence: None)
  Receive Date: 20091130
  Receipt Date: 20091119
  Transmission Date: 20100525
  Serious: Yes (Hospitalization)
  Sender: FDA-Public Use
  Company Number: VE-BAXTER-2009BH018294

PATIENT
  Age: 42 Year
  Sex: Male
  Weight: 67 kg

DRUGS (1)
  1. DIANEAL [Suspect]
     Indication: PERITONEAL DIALYSIS
     Route: 033
     Dates: start: 20091116

REACTIONS (1)
  - FUNGAL PERITONITIS [None]
